FAERS Safety Report 15354251 (Version 3)
Quarter: 2019Q1

REPORT INFORMATION
  Report Type: Report from Study
  Country: None (occurrence: US)
  Receive Date: 20180906
  Receipt Date: 20190113
  Transmission Date: 20190417
  Serious: Yes (Hospitalization, Other)
  Sender: FDA-Public Use
  Company Number: US-ABBVIE-18K-163-2470989-00

PATIENT
  Age: 57 Year
  Sex: Male
  Weight: 83.54 kg

DRUGS (1)
  1. HUMIRA [Suspect]
     Active Substance: ADALIMUMAB
     Indication: CROHN^S DISEASE
     Route: 058
     Dates: end: 2018

REACTIONS (17)
  - Injection site pain [Unknown]
  - Limb operation [Unknown]
  - Crohn^s disease [Recovering/Resolving]
  - Joint range of motion decreased [Recovering/Resolving]
  - Gastrointestinal pain [Recovering/Resolving]
  - Feeling abnormal [Unknown]
  - Spinal operation [Unknown]
  - Limb traumatic amputation [Not Recovered/Not Resolved]
  - Pain [Not Recovered/Not Resolved]
  - Weight decreased [Recovering/Resolving]
  - Stubbornness [Unknown]
  - Neck surgery [Unknown]
  - Gait disturbance [Recovering/Resolving]
  - Asthenia [Recovering/Resolving]
  - Drug effect decreased [Recovering/Resolving]
  - Abdominal adhesions [Unknown]
  - Anxiety [Unknown]

NARRATIVE: CASE EVENT DATE: 2018
